FAERS Safety Report 21649784 (Version 5)
Quarter: 2023Q1

REPORT INFORMATION
  Report Type: Spontaneous
  Country: ES (occurrence: ES)
  Receive Date: 20221128
  Receipt Date: 20230208
  Transmission Date: 20230418
  Serious: Yes (Hospitalization, Other)
  Sender: FDA-Public Use
  Company Number: ES-UCBSA-2021033457

PATIENT
  Age: 23 Year
  Sex: Male

DRUGS (31)
  1. BRIVARACETAM [Suspect]
     Active Substance: BRIVARACETAM
     Indication: Status epilepticus
     Dosage: 400 MILLIGRAM, DAILY
  2. BRIVARACETAM [Suspect]
     Active Substance: BRIVARACETAM
     Indication: Partial seizures
  3. BRIVARACETAM [Suspect]
     Active Substance: BRIVARACETAM
     Indication: Off label use
  4. BRIVARACETAM [Suspect]
     Active Substance: BRIVARACETAM
     Indication: Seizure
  5. VIMPAT [Suspect]
     Active Substance: LACOSAMIDE
     Indication: Status epilepticus
     Dosage: 500 MILLIGRAM, DAILY
  6. VIMPAT [Suspect]
     Active Substance: LACOSAMIDE
     Indication: Partial seizures
  7. VIMPAT [Suspect]
     Active Substance: LACOSAMIDE
     Indication: Off label use
  8. VIMPAT [Suspect]
     Active Substance: LACOSAMIDE
     Indication: Seizure
  9. KINERET [Suspect]
     Active Substance: ANAKINRA
     Indication: Status epilepticus
     Dosage: AT DAY 28, ANAKINRA AT 5MG/KG EVERY 12 HOURS WAS STARTED
  10. METHYLPREDNISOLONE SODIUM SUCCINATE [Suspect]
     Active Substance: METHYLPREDNISOLONE SODIUM SUCCINATE
     Indication: Status epilepticus
     Dosage: 1 GRAM DAILY, SUCCESSIVELY ADMINISTERED AT DAYS 14,17,20 AND 23RESPECTIVELY
  11. METHYLPREDNISOLONE SODIUM SUCCINATE [Suspect]
     Active Substance: METHYLPREDNISOLONE SODIUM SUCCINATE
     Indication: Seizure
  12. PHENOBARBITAL [Suspect]
     Active Substance: PHENOBARBITAL
     Indication: Status epilepticus
     Dosage: 800 MILLIGRAM, DAILY
  13. PHENOBARBITAL [Suspect]
     Active Substance: PHENOBARBITAL
     Indication: Seizure
  14. TOCILIZUMAB [Suspect]
     Active Substance: TOCILIZUMAB
     Indication: Seizure
     Dosage: 8 MICROGRAM/KILOGRAM PER DAY
  15. TOCILIZUMAB [Suspect]
     Active Substance: TOCILIZUMAB
     Indication: Status epilepticus
  16. PERAMPANEL [Suspect]
     Active Substance: PERAMPANEL
     Indication: Status epilepticus
     Dosage: 20 MILLIGRAM, DAILY
  17. PERAMPANEL [Suspect]
     Active Substance: PERAMPANEL
     Indication: Seizure
     Dosage: 12 MILLIGRAM, DAILY
  18. PHENYTOIN SODIUM [Suspect]
     Active Substance: PHENYTOIN SODIUM
     Indication: Status epilepticus
     Dosage: 800 MILLIGRAM, DAILY
  19. PHENYTOIN SODIUM [Suspect]
     Active Substance: PHENYTOIN SODIUM
     Indication: Seizure
  20. HUMAN IMMUNOGLOBULIN G [Suspect]
     Active Substance: HUMAN IMMUNOGLOBULIN G
     Indication: Status epilepticus
     Dosage: 0.4 G/KG/DAY,IV-IG 0.4G/KG/DAY SUCCESSIVELY ADMINISTERED AT DAYS 14, 17, 20 AND 23, RESPECTIVELY
     Route: 042
  21. CLONAZEPAM [Suspect]
     Active Substance: CLONAZEPAM
     Indication: Status epilepticus
     Dosage: 3 MILLIGRAM, DAILY
  22. CLONAZEPAM [Suspect]
     Active Substance: CLONAZEPAM
     Indication: Seizure
  23. METHYLPREDNISOLONE [Suspect]
     Active Substance: METHYLPREDNISOLONE
     Indication: Seizure
     Dosage: 0.4 GRAM PER KILOGRAM PER DAY
     Route: 042
  24. METHYLPREDNISOLONE [Suspect]
     Active Substance: METHYLPREDNISOLONE
     Indication: Status epilepticus
  25. VALPROIC ACID [Concomitant]
     Active Substance: VALPROIC ACID
     Indication: Status epilepticus
     Dosage: 1500 MILLIGRAM
  26. VALPROIC ACID [Concomitant]
     Active Substance: VALPROIC ACID
     Indication: Seizure
     Dosage: 3400 MILLIGRAM/DAY
  27. CANNABIDIOL [Concomitant]
     Active Substance: CANNABIDIOL
     Indication: Status epilepticus
     Dosage: UNK
  28. CANNABIDIOL [Concomitant]
     Active Substance: CANNABIDIOL
     Indication: Seizure
     Dosage: 10 MILLIGRAM
  29. ZONISAMIDE [Concomitant]
     Active Substance: ZONISAMIDE
     Indication: Status epilepticus
     Dosage: 200 MILLIGRAM PER DAY
  30. ZONISAMIDE [Concomitant]
     Active Substance: ZONISAMIDE
     Indication: Seizure
     Dosage: 500 MILLIGRAM/DAY
  31. ANAKINRA [Concomitant]
     Active Substance: ANAKINRA
     Indication: Status epilepticus
     Dosage: 5 MILLIGRAM/KILOGRAM

REACTIONS (8)
  - Status epilepticus [Recovered/Resolved]
  - Multiple-drug resistance [Unknown]
  - Partial seizures with secondary generalisation [Recovering/Resolving]
  - Seizure [Recovering/Resolving]
  - Abnormal behaviour [Unknown]
  - Memory impairment [Unknown]
  - Off label use [Unknown]
  - Drug ineffective for unapproved indication [Unknown]
